FAERS Safety Report 15288163 (Version 1)
Quarter: 2018Q3

REPORT INFORMATION
  Report Type: Spontaneous
  Country: US (occurrence: US)
  Receive Date: 20180802
  Receipt Date: 20180802
  Transmission Date: 20181010
  Serious: No
  Sender: FDA-Public Use
  Company Number: None

PATIENT
  Sex: Male

DRUGS (2)
  1. ENBREL [Suspect]
     Active Substance: ETANERCEPT
     Indication: FUNGAL SKIN INFECTION
     Route: 058
     Dates: start: 20180322
  2. TERBINAFINE. [Concomitant]
     Active Substance: TERBINAFINE

REACTIONS (2)
  - Drug dose omission [None]
  - Malaise [None]
